FAERS Safety Report 7912350-2 (Version None)
Quarter: 2011Q4

REPORT INFORMATION
  Report Type: 
  Country: None (occurrence: None)
  Receive Date: 20111114
  Receipt Date: 20110802
  Transmission Date: 20120403
  Serious: No
  Sender: FDA-Public Use
  Company Number: US-BAYER-2011-070898

PATIENT

DRUGS (2)
  1. ALEVE (CAPLET) [Suspect]
     Indication: TOOTHACHE
     Dosage: 2  TABLETS
     Route: 048
  2. LORTAB [Concomitant]
     Dosage: UNK
     Route: 048

REACTIONS (1)
  - TOOTHACHE [None]
